FAERS Safety Report 12572025 (Version 4)
Quarter: 2016Q3

REPORT INFORMATION
  Report Type: Spontaneous
  Country: ES (occurrence: ES)
  Receive Date: 20160719
  Receipt Date: 20160810
  Transmission Date: 20161109
  Serious: Yes (Hospitalization, Other)
  Sender: FDA-Public Use
  Company Number: ES-SA-2016SA130731

PATIENT
  Age: 37 Year
  Sex: Female
  Weight: 55 kg

DRUGS (7)
  1. OMEPRAZOL NORMON [Concomitant]
     Indication: PREMEDICATION
     Route: 048
     Dates: start: 20160711
  2. PARACETAMOL [Concomitant]
     Active Substance: ACETAMINOPHEN
     Indication: PREMEDICATION
     Route: 042
     Dates: start: 20160711, end: 20160713
  3. URBASON [Concomitant]
     Active Substance: METHYLPREDNISOLONE
     Indication: PREMEDICATION
     Dates: start: 20160711, end: 20160713
  4. DEXCHLORPHENIRAMINE [Concomitant]
     Active Substance: DEXCHLORPHENIRAMINE
     Indication: PREMEDICATION
     Route: 042
     Dates: start: 20160711, end: 20160713
  5. POLARAMINE [Concomitant]
     Active Substance: DEXCHLORPHENIRAMINE MALEATE
     Indication: PREMEDICATION
     Dates: start: 20160711, end: 20160713
  6. ACICLOVIR KERN PHARMA [Concomitant]
     Indication: PROPHYLAXIS
     Route: 048
     Dates: start: 20160711
  7. LEMTRADA [Suspect]
     Active Substance: ALEMTUZUMAB
     Indication: MULTIPLE SCLEROSIS
     Route: 042
     Dates: start: 20160711, end: 20160712

REACTIONS (5)
  - Cytokine release syndrome [Unknown]
  - Pericarditis [Unknown]
  - Chest discomfort [Not Recovered/Not Resolved]
  - Interstitial lung disease [Not Recovered/Not Resolved]
  - Bradycardia [Not Recovered/Not Resolved]

NARRATIVE: CASE EVENT DATE: 201607
